FAERS Safety Report 24608322 (Version 2)
Quarter: 2024Q4

REPORT INFORMATION
  Report Type: Spontaneous
  Country: JP (occurrence: JP)
  Receive Date: 20241112
  Receipt Date: 20241212
  Transmission Date: 20250115
  Serious: Yes (Other)
  Sender: ALEXION PHARMACEUTICALS
  Company Number: JP-ASTRAZENECA-240119927_032320_P_1

PATIENT
  Age: 7 Decade

DRUGS (10)
  1. SAPHNELO [Suspect]
     Active Substance: ANIFROLUMAB-FNIA
     Dosage: DOSE UNKNOWN
  2. SAPHNELO [Suspect]
     Active Substance: ANIFROLUMAB-FNIA
     Dosage: DOSE UNKNOWN
     Route: 030
  3. SAPHNELO [Suspect]
     Active Substance: ANIFROLUMAB-FNIA
     Dosage: DOSE UNKNOWN
  4. SAPHNELO [Suspect]
     Active Substance: ANIFROLUMAB-FNIA
     Dosage: DOSE UNKNOWN
     Route: 030
  5. PREDNISOLONE [Concomitant]
     Active Substance: PREDNISOLONE
     Dosage: NUMBER OF SEPARATE DOSAGES UNKNOWN
     Route: 065
  6. PREDNISOLONE [Concomitant]
     Active Substance: PREDNISOLONE
     Dosage: NUMBER OF SEPARATE DOSAGES UNKNOWN
     Route: 065
  7. TACROLIMUS [Concomitant]
     Active Substance: TACROLIMUS
     Dosage: UNK MILLIGRAM
     Route: 065
  8. TACROLIMUS [Concomitant]
     Active Substance: TACROLIMUS
     Dosage: UNK MILLIGRAM
     Route: 065
  9. HYDROXYCHLOROQUINE SULFATE [Concomitant]
     Active Substance: HYDROXYCHLOROQUINE SULFATE
     Dosage: DOSE UNKNOWN
     Route: 065
  10. HYDROXYCHLOROQUINE SULFATE [Concomitant]
     Active Substance: HYDROXYCHLOROQUINE SULFATE
     Dosage: DOSE UNKNOWN
     Route: 065

REACTIONS (1)
  - Immune-mediated dermatitis [Unknown]
